FAERS Safety Report 5937961-5 (Version None)
Quarter: 2008Q4

REPORT INFORMATION
  Report Type: 
  Country: None (occurrence: None)
  Receive Date: 20081031
  Receipt Date: 20081021
  Transmission Date: 20090506
  Serious: Yes (Hospitalization)
  Sender: FDA-Public Use
  Company Number: SE-ROCHE-584768

PATIENT
  Age: 54 Year
  Sex: Male

DRUGS (14)
  1. MIRCERA [Suspect]
     Dosage: STRENGTH: 150UG/0.3ML; DOSAGE: C 4W
     Route: 042
     Dates: start: 20080409, end: 20080905
  2. ARANESP [Concomitant]
     Dates: start: 20061024, end: 20080408
  3. ATACAND [Concomitant]
     Indication: BLOOD PRESSURE
     Dosage: DOSAGE: 0.5 X 1
     Dates: start: 20080209, end: 20080827
  4. ETALPHA [Concomitant]
     Indication: HYPERPARATHYROIDISM SECONDARY
     Dosage: STRENGTH: 2UG/ML
     Dates: start: 20070116
  5. FOSRENOL [Concomitant]
     Dosage: DOSAGE: 1 X 3
     Dates: start: 20080813, end: 20080911
  6. FURIX [Concomitant]
     Dosage: DOSE REPORTED: ^C^
     Dates: start: 20080103
  7. INNOHEP [Concomitant]
     Indication: THROMBOSIS PROPHYLAXIS
     Dosage: REPORTED: 10000 ANTI-XA IU/ML; DOSAGE RECEIVED ON MONDAY, WEDNESDAY, FRIDAY
     Dates: start: 20070123
  8. MIMPARA [Concomitant]
     Indication: HYPERPARATHYROIDISM SECONDARY
     Dosage: DOSE: 1 X 2
     Dates: start: 20061024, end: 20080915
  9. NATRIUMBIKARBONAT [Concomitant]
     Indication: ACIDOSIS
     Dosage: DOSE: 1 X 1
     Dates: start: 20061024
  10. RENAGEL [Concomitant]
     Dosage: DOSE: 2 X 2
     Dates: start: 20070220
  11. SIMVASTATIN [Concomitant]
     Dosage: DOSE: 1 X 1
     Dates: start: 20070503
  12. VENOFER [Concomitant]
     Indication: DIALYSIS
     Dosage: REPORTED: INJ KONC INF 20MG/ML DOSE: SCHEDULE
     Dates: start: 20080102
  13. SODIUM POLYSTYRENE SULFONATE [Concomitant]
     Dosage: DOSE: WHEN REQUIRED
     Route: 048
     Dates: start: 20080109
  14. ZOLPIDEM TARTRATE [Concomitant]
     Indication: SLEEP DISORDER
     Dosage: DOSE: WHEN REQUIRED
     Dates: start: 20080526

REACTIONS (5)
  - DYSPHAGIA [None]
  - ERYTHEMA [None]
  - HAEMATURIA [None]
  - HAEMOLYSIS [None]
  - HICCUPS [None]
